FAERS Safety Report 4959082-0 (Version None)
Quarter: 2006Q1

REPORT INFORMATION
  Report Type: 
  Country: None (occurrence: None)
  Receive Date: 20060330
  Receipt Date: 20060330
  Transmission Date: 20060701
  Serious: Yes (Disabling)
  Sender: FDA-Public Use
  Company Number: None

PATIENT
  Age: 68 Year
  Sex: Male
  Weight: 106 kg

DRUGS (3)
  1. WARFARIN  5MG  DUPONT [Suspect]
     Indication: AORTIC VALVE STENOSIS
     Dosage: 5MG  QD PO
     Route: 048
     Dates: start: 20060124, end: 20060215
  2. WARFARIN  5MG  DUPONT [Suspect]
     Indication: MITRAL VALVE DISEASE
     Dosage: 5MG  QD PO
     Route: 048
     Dates: start: 20060124, end: 20060215
  3. AMIODARONE  200MG [Suspect]
     Indication: ATRIAL FIBRILLATION
     Dosage: 100MG QD PO
     Route: 048
     Dates: start: 20060124, end: 20060215

REACTIONS (2)
  - CONTUSION [None]
  - INTERNATIONAL NORMALISED RATIO INCREASED [None]
